FAERS Safety Report 18200864 (Version 1)
Quarter: 2020Q3

REPORT INFORMATION
  Report Type: Report from Study
  Country: US (occurrence: US)
  Receive Date: 20200827
  Receipt Date: 20200827
  Transmission Date: 20201103
  Serious: Yes (Life-Threatening, Other)
  Sender: FDA-Public Use
  Company Number: US-AUROBINDO-AUR-APL-2019-101158

PATIENT
  Age: 48 Year
  Sex: Male

DRUGS (3)
  1. CLONAZEPAM. [Suspect]
     Active Substance: CLONAZEPAM
     Indication: MULTIPLE DRUG THERAPY
     Dosage: UNK
     Route: 048
  2. METFORMIN TABLET [Suspect]
     Active Substance: METFORMIN HYDROCHLORIDE
     Indication: MULTIPLE DRUG THERAPY
     Dosage: UNK
     Route: 048
  3. TRAZODONE [Suspect]
     Active Substance: TRAZODONE HYDROCHLORIDE
     Indication: MULTIPLE DRUG THERAPY
     Dosage: UNK
     Route: 048

REACTIONS (13)
  - Haemolysis [Unknown]
  - Ventricular arrhythmia [Unknown]
  - Multiple drug therapy [Unknown]
  - Acute kidney injury [Unknown]
  - Intentional product misuse [Unknown]
  - Acute respiratory distress syndrome [Unknown]
  - Bradycardia [Unknown]
  - Metabolic acidosis [Unknown]
  - Hypoglycaemia [Unknown]
  - Coma [Unknown]
  - Acidosis [Unknown]
  - Hypoventilation [Unknown]
  - Hypotension [Unknown]
